FAERS Safety Report 7341190-0 (Version None)
Quarter: 2011Q1

REPORT INFORMATION
  Report Type: 
  Country: None (occurrence: None)
  Receive Date: 20110309
  Receipt Date: 20110301
  Transmission Date: 20110831
  Serious: Yes (Other)
  Sender: FDA-Public Use
  Company Number: B0704696A

PATIENT
  Sex: Female

DRUGS (1)
  1. ZYBAN [Suspect]
     Route: 065

REACTIONS (4)
  - MANIA [None]
  - DISTURBANCE IN ATTENTION [None]
  - ELEVATED MOOD [None]
  - EUPHORIC MOOD [None]
